FAERS Safety Report 6992132-9 (Version None)
Quarter: 2010Q3

REPORT INFORMATION
  Report Type: 
  Country: None (occurrence: None)
  Receive Date: 20100917
  Receipt Date: 20100913
  Transmission Date: 20110219
  Serious: Yes (Death)
  Sender: FDA-Public Use
  Company Number: US-SOLVAY-00210005580

PATIENT
  Age: 638 Month
  Sex: Female

DRUGS (1)
  1. CREON [Suspect]
     Indication: PRODUCT USED FOR UNKNOWN INDICATION
     Dosage: DAILY DOSE: UNK; UNIT DOSE: 12,000 U LIPASE/CAP, AS USED: 4 CAPS WITH MEALS, 2 CAPS WITH SNACKS,
     Route: 048
     Dates: end: 20100901

REACTIONS (1)
  - DEATH [None]
